FAERS Safety Report 13959609 (Version 1)
Quarter: 2017Q3

REPORT INFORMATION
  Report Type: Spontaneous
  Country: US (occurrence: US)
  Receive Date: 20170911
  Receipt Date: 20170911
  Transmission Date: 20171128
  Serious: No
  Sender: FDA-Public Use
  Company Number: US-GE HEALTHCARE LIFE SCIENCES-2017CSU002825

PATIENT
  Age: 40 Year
  Sex: Male

DRUGS (2)
  1. OMNIPAQUE [Suspect]
     Active Substance: IOHEXOL
     Indication: WOUND
     Dosage: 50 ML, SINGLE
     Route: 048
     Dates: start: 20170907, end: 20170907
  2. OMNIPAQUE [Suspect]
     Active Substance: IOHEXOL
     Indication: WOUND
     Dosage: 100 ML, SINGLE
     Route: 042
     Dates: start: 20170907, end: 20170907

REACTIONS (2)
  - Urticaria [Recovered/Resolved]
  - Gingival oedema [Recovered/Resolved]

NARRATIVE: CASE EVENT DATE: 20170907
